FAERS Safety Report 15567585 (Version 2)
Quarter: 2018Q4

REPORT INFORMATION
  Report Type: Spontaneous
  Country: JP (occurrence: JP)
  Receive Date: 20181030
  Receipt Date: 20181106
  Transmission Date: 20190205
  Serious: Yes (Hospitalization, Other)
  Sender: FDA-Public Use
  Company Number: JP-SA-2018SA294472

PATIENT
  Age: 56 Year
  Sex: Male

DRUGS (4)
  1. CEFAZOLIN SODIUM. [Concomitant]
     Active Substance: CEFAZOLIN SODIUM
     Indication: PRODUCT USED FOR UNKNOWN INDICATION
     Dosage: UNK
     Route: 065
  2. FLUOROURACIL. [Suspect]
     Active Substance: FLUOROURACIL
     Indication: HYPOPHARYNGEAL CANCER
     Dosage: UNK
     Route: 065
     Dates: start: 201312
  3. DOCETAXEL. [Suspect]
     Active Substance: DOCETAXEL
     Indication: HYPOPHARYNGEAL CANCER
     Dosage: UNK
     Route: 041
     Dates: start: 201312
  4. CISPLATIN. [Suspect]
     Active Substance: CISPLATIN
     Indication: HYPOPHARYNGEAL CANCER
     Dosage: UNK
     Route: 065
     Dates: start: 201312

REACTIONS (5)
  - Infection [Unknown]
  - Infective spondylitis [Unknown]
  - Hyperthermia [Unknown]
  - Back pain [Unknown]
  - Disseminated intravascular coagulation [Unknown]
